FAERS Safety Report 21767795 (Version 12)
Quarter: 2024Q3

REPORT INFORMATION
  Report Type: Report from Study
  Country: JP (occurrence: JP)
  Receive Date: 20221222
  Receipt Date: 20240912
  Transmission Date: 20241017
  Serious: Yes (Hospitalization, Other)
  Sender: PFIZER
  Company Number: JP-PFIZER INC-PV202200068661

PATIENT
  Age: 5 Year
  Sex: Female
  Weight: 13.5 kg

DRUGS (12)
  1. SIROLIMUS [Suspect]
     Active Substance: SIROLIMUS
     Indication: Gorham^s disease
     Dosage: 1 MG,1 D
     Route: 048
     Dates: start: 20220818, end: 20220830
  2. SIROLIMUS [Suspect]
     Active Substance: SIROLIMUS
     Dosage: 1 MG,1 WK
     Route: 048
     Dates: start: 20240123, end: 20240319
  3. SIROLIMUS [Suspect]
     Active Substance: SIROLIMUS
     Dosage: 1 MG,1 WK
     Route: 048
     Dates: start: 20240402, end: 20240416
  4. SIROLIMUS [Suspect]
     Active Substance: SIROLIMUS
     Dosage: 1 MG,2 WK
     Route: 048
     Dates: start: 20240417
  5. LACTOBACILLUS ACIDOPHILUS\STREPTOCOCCUS FAECAIS [Concomitant]
     Active Substance: LACTOBACILLUS ACIDOPHILUS\STREPTOCOCCUS FAECAIS
     Indication: Prophylaxis
     Dosage: 0.5 GM, 8 HR
     Route: 048
  6. CLARITHROMYCIN [Concomitant]
     Active Substance: CLARITHROMYCIN
     Dosage: 50 MG,12 HR
     Route: 065
  7. FUROSEMIDE [Concomitant]
     Active Substance: FUROSEMIDE
     Dosage: 5 MG, 12 HR
     Route: 048
  8. SPIRONOLACTONE [Concomitant]
     Active Substance: SPIRONOLACTONE
     Dosage: 5 MG, 12 HR
     Route: 048
  9. INDERAL [Concomitant]
     Active Substance: PROPRANOLOL HYDROCHLORIDE
     Indication: Gorham^s disease
     Dosage: 9 MG, 6 HR
     Route: 065
  10. ENEVO [Concomitant]
     Indication: Nutritional supplementation
     Dosage: UNK
     Route: 065
  11. SOLITA [Concomitant]
     Indication: Nutritional supplementation
     Dosage: UNK
     Route: 065
  12. PROPRANOLOL HYDROCHLORIDE [Concomitant]
     Active Substance: PROPRANOLOL HYDROCHLORIDE
     Indication: Haemangioma of skin
     Dosage: UNK
     Route: 048

REACTIONS (9)
  - Diarrhoea [Recovering/Resolving]
  - White blood cell count decreased [Recovered/Resolved]
  - Platelet count decreased [Recovered/Resolved]
  - Stomatitis [Recovering/Resolving]
  - C-reactive protein increased [Unknown]
  - Hepatic function abnormal [Recovering/Resolving]
  - Drug level increased [Unknown]
  - Diarrhoea [Recovering/Resolving]
  - Hot flush [Recovering/Resolving]

NARRATIVE: CASE EVENT DATE: 20220819
